FAERS Safety Report 7619885-0 (Version None)
Quarter: 2011Q3

REPORT INFORMATION
  Report Type: 
  Country: None (occurrence: None)
  Receive Date: 20110719
  Receipt Date: 20110714
  Transmission Date: 20111222
  Serious: Yes (Other)
  Sender: FDA-Public Use
  Company Number: US-SANOFI-AVENTIS-2011SA021863

PATIENT
  Age: 80 Year
  Sex: Female

DRUGS (6)
  1. SIMVASTATIN [Concomitant]
  2. MULTAQ [Suspect]
     Indication: ATRIAL FIBRILLATION
     Route: 048
     Dates: start: 20101221
  3. MULTAQ [Suspect]
     Route: 048
  4. WELCHOL [Concomitant]
  5. ZETIA [Concomitant]
  6. ALL OTHER THERAPEUTIC PRODUCTS [Concomitant]

REACTIONS (6)
  - ATRIAL FIBRILLATION [None]
  - LOW DENSITY LIPOPROTEIN INCREASED [None]
  - ALOPECIA [None]
  - MUSCLE SPASMS [None]
  - HIGH DENSITY LIPOPROTEIN DECREASED [None]
  - INCORRECT DOSE ADMINISTERED [None]
